FAERS Safety Report 24292608 (Version 1)
Quarter: 2024Q3

REPORT INFORMATION
  Report Type: Spontaneous
  Country: US (occurrence: None)
  Receive Date: 20240906
  Receipt Date: 20240906
  Transmission Date: 20241016
  Serious: Yes (Death)
  Sender: ASTRAZENECA
  Company Number: 2024A202384

PATIENT
  Age: 44 Year
  Sex: Female

DRUGS (3)
  1. TICAGRELOR [Suspect]
     Active Substance: TICAGRELOR
     Route: 048
  2. ASPIRIN [Concomitant]
     Active Substance: ASPIRIN
  3. HEPARIN [Concomitant]
     Active Substance: HEPARIN SODIUM

REACTIONS (3)
  - Subarachnoid haemorrhage [Fatal]
  - Brain oedema [Fatal]
  - Brain death [Fatal]
